FAERS Safety Report 10901278 (Version 1)
Quarter: 2015Q1

REPORT INFORMATION
  Report Type: Spontaneous
  Country: FI (occurrence: FI)
  Receive Date: 20150310
  Receipt Date: 20150310
  Transmission Date: 20150721
  Serious: Yes (Life-Threatening, Hospitalization)
  Sender: FDA-Public Use
  Company Number: FI-MYLANLABS-2015M1007283

PATIENT

DRUGS (2)
  1. VALPROATE SEMISODIUM [Suspect]
     Active Substance: DIVALPROEX SODIUM
     Indication: PARTIAL SEIZURES
     Dosage: 500 MG TWICE A DAY FOR 1 YEAR
     Route: 065
  2. VALPROATE SEMISODIUM [Suspect]
     Active Substance: DIVALPROEX SODIUM
     Dosage: 100 TABLETS
     Route: 065

REACTIONS (5)
  - Intentional overdose [Recovered/Resolved]
  - Loss of consciousness [Recovered/Resolved]
  - Brain oedema [Recovered/Resolved]
  - Toxicity to various agents [Recovered/Resolved]
  - Pneumonia aspiration [Unknown]
